FAERS Safety Report 16348927 (Version 2)
Quarter: 2019Q4

REPORT INFORMATION
  Report Type: Spontaneous
  Country: US (occurrence: US)
  Receive Date: 20190523
  Receipt Date: 20191002
  Transmission Date: 20200122
  Serious: Yes (Hospitalization)
  Sender: FDA-Public Use
  Company Number: US-CATALYST PHARMACEUTICALS, INC-2019CAT00149

PATIENT
  Sex: Female

DRUGS (1)
  1. FIRDAPSE [Suspect]
     Active Substance: AMIFAMPRIDINE
     Indication: MYASTHENIC SYNDROME
     Dosage: 1 TABLETS 6-7 TIMES DAILY (TOTAL DAILY DOSE OF 65 MG)
     Route: 048
     Dates: start: 201902, end: 2019

REACTIONS (8)
  - Dysphagia [Not Recovered/Not Resolved]
  - Infection [Unknown]
  - Therapeutic response shortened [Recovered/Resolved]
  - Fall [Unknown]
  - Therapeutic response delayed [Recovered/Resolved]
  - Therapeutic product effect decreased [Recovered/Resolved]
  - Cellulitis [Unknown]
  - Abdominal pain upper [Not Recovered/Not Resolved]

NARRATIVE: CASE EVENT DATE: 2019
